FAERS Safety Report 19576760 (Version 3)
Quarter: 2021Q3

REPORT INFORMATION
  Report Type: Spontaneous
  Country: US (occurrence: US)
  Receive Date: 20210719
  Receipt Date: 20210811
  Transmission Date: 20211014
  Serious: Yes (Other)
  Sender: FDA-Public Use
  Company Number: US-GUERBET-US-20210096

PATIENT
  Age: 58 Year
  Sex: Male

DRUGS (5)
  1. MITOMYCIN C [Suspect]
     Active Substance: MITOMYCIN
     Indication: TRANSCATHETER ARTERIAL CHEMOEMBOLISATION
     Dosage: 2:1 MIXTURE OF LIPIODOL AND 10 ML AQUEOUS CHEMOTHERAPY SOLUTION COMPRISING DOXORUBICIN 50 MG AND MIT
     Route: 013
  2. LIPIODOL [Suspect]
     Active Substance: ETHIODIZED OIL
     Indication: TRANSCATHETER ARTERIAL CHEMOEMBOLISATION
     Dosage: 2:1 MIXTURE OF LIPIODOL AND 10 ML AQUEOUS CHEMOTHERAPY SOLUTION COMPRISING DOXORUBICIN 50MG AND MITO
     Route: 013
  3. CEFAZOLIN [Concomitant]
     Active Substance: CEFAZOLIN
     Indication: PREMEDICATION
     Dosage: BEFORE THE CTACE PROCEDURE
     Route: 042
  4. DOXORUBICIN [Suspect]
     Active Substance: DOXORUBICIN
     Indication: TRANSCATHETER ARTERIAL CHEMOEMBOLISATION
     Dosage: 2:1 MIXTURE OF LIPIODOL AND 10 ML AQUEOUS CHEMOTHERAPY SOLUTION COMPRISING DOXORUBICIN 50 MG AND MIT
     Route: 013
  5. OMNIPAQUE?300 [Concomitant]
     Indication: TRANSCATHETER ARTERIAL CHEMOEMBOLISATION
     Route: 013

REACTIONS (1)
  - Acute kidney injury [Recovered/Resolved]
